FAERS Safety Report 9852720 (Version 1)
Quarter: 2014Q1

REPORT INFORMATION
  Report Type: Spontaneous
  Country: ES (occurrence: ES)
  Receive Date: 20140129
  Receipt Date: 20140129
  Transmission Date: 20141002
  Serious: Yes (Other)
  Sender: FDA-Public Use
  Company Number: ES-B.I. PHARMACEUTICALS,INC./RIDGEFIELD-2014-BI-02896GD

PATIENT
  Age: 12 Year
  Sex: Male

DRUGS (3)
  1. IBUPROFEN [Suspect]
     Dosage: 600 MG
  2. METAMIZOL [Suspect]
     Indication: FALL
  3. MELOXICAM [Suspect]
     Indication: ALLERGY TEST
     Dosage: 3.75 MG
     Route: 048

REACTIONS (5)
  - Chest discomfort [Recovered/Resolved]
  - Pruritus [Recovered/Resolved]
  - Lip oedema [Recovered/Resolved]
  - Bronchospasm [Unknown]
  - Wheezing [Unknown]
